FAERS Safety Report 11141344 (Version 1)
Quarter: 2015Q2

REPORT INFORMATION
  Report Type: Spontaneous
  Country: US (occurrence: US)
  Receive Date: 20150525
  Receipt Date: 20150525
  Transmission Date: 20150821
  Serious: No
  Sender: FDA-Public Use
  Company Number: US-JNJFOC-20120701903

PATIENT
  Age: 64 Year
  Sex: Male

DRUGS (1)
  1. RISPERDAL CONSTA [Suspect]
     Active Substance: RISPERIDONE
     Indication: SCHIZOPHRENIA
     Route: 030
     Dates: start: 201011

REACTIONS (3)
  - Wrong technique in drug usage process [Recovered/Resolved]
  - Medical device complication [Recovered/Resolved]
  - Procedural complication [Unknown]

NARRATIVE: CASE EVENT DATE: 20120703
